FAERS Safety Report 8020177-9 (Version None)
Quarter: 2012Q1

REPORT INFORMATION
  Report Type: 
  Country: None (occurrence: None)
  Receive Date: 20120103
  Receipt Date: 20111222
  Transmission Date: 20120608
  Serious: Yes (Hospitalization)
  Sender: FDA-Public Use
  Company Number: FR-ROCHE-779559

PATIENT
  Sex: Female

DRUGS (3)
  1. HERCEPTIN [Suspect]
     Indication: PRODUCT USED FOR UNKNOWN INDICATION
     Dosage: FREQUENCY: ONCE
     Route: 042
     Dates: start: 20110427, end: 20110427
  2. CYCLOPHOSPHAMIDE [Suspect]
     Indication: PRODUCT USED FOR UNKNOWN INDICATION
     Dosage: FREQUENCY: ONCE
     Route: 042
     Dates: start: 20110427, end: 20110427
  3. TAXOTERE [Suspect]
     Indication: PRODUCT USED FOR UNKNOWN INDICATION
     Dosage: FREQUENCY: ONCE
     Route: 042
     Dates: start: 20110427, end: 20110427

REACTIONS (3)
  - ANTI-PLATELET ANTIBODY POSITIVE [None]
  - THROMBOCYTOPENIA [None]
  - HAEMOLYTIC ANAEMIA [None]
